FAERS Safety Report 26163072 (Version 1)
Quarter: 2025Q4

REPORT INFORMATION
  Report Type: Spontaneous
  Country: US (occurrence: None)
  Receive Date: 20251216
  Receipt Date: 20251216
  Transmission Date: 20260117
  Serious: Yes (Hospitalization)
  Sender: FDA-CTU
  Company Number: None

PATIENT
  Age: 64 Year
  Sex: Female
  Weight: 46 kg

DRUGS (2)
  1. PEMBROLIZUMAB [Suspect]
     Active Substance: PEMBROLIZUMAB
     Dates: end: 20251113
  2. ALIMTA [Suspect]
     Active Substance: PEMETREXED DISODIUM
     Dates: end: 20251113

REACTIONS (11)
  - Chronic obstructive pulmonary disease [None]
  - Pneumonia [None]
  - Haematemesis [None]
  - Dysphagia [None]
  - Hypophagia [None]
  - Decreased appetite [None]
  - Tachycardia [None]
  - Ejection fraction decreased [None]
  - Aortic valve incompetence [None]
  - Breast discharge [None]
  - Retracted nipple [None]

NARRATIVE: CASE EVENT DATE: 20251117
